FAERS Safety Report 12500933 (Version 1)
Quarter: 2016Q2

REPORT INFORMATION
  Report Type: Spontaneous
  Country: RS (occurrence: RS)
  Receive Date: 20160627
  Receipt Date: 20160627
  Transmission Date: 20160815
  Serious: Yes (Hospitalization, Other)
  Sender: FDA-Public Use
  Company Number: RS-JNJFOC-20160613965

PATIENT
  Age: 30 Year
  Sex: Female

DRUGS (8)
  1. DOXORUBICIN HYDROCHLORIDE. [Suspect]
     Active Substance: DOXORUBICIN HYDROCHLORIDE
     Indication: ACUTE MYELOID LEUKAEMIA
     Route: 042
     Dates: start: 2004
  2. CYTARABINE. [Suspect]
     Active Substance: CYTARABINE
     Indication: ACUTE MYELOID LEUKAEMIA
     Route: 040
     Dates: start: 2004
  3. ETOPOSIDE. [Suspect]
     Active Substance: ETOPOSIDE
     Indication: ACUTE MYELOID LEUKAEMIA
     Route: 042
     Dates: start: 2004
  4. ETOPOSIDE. [Suspect]
     Active Substance: ETOPOSIDE
     Indication: ACUTE MYELOID LEUKAEMIA
     Route: 042
     Dates: start: 200409
  5. CYTARABINE. [Suspect]
     Active Substance: CYTARABINE
     Indication: ACUTE MYELOID LEUKAEMIA
     Route: 042
     Dates: start: 200409
  6. MITOXANTRONE [Suspect]
     Active Substance: MITOXANTRONE HYDROCHLORIDE
     Indication: ACUTE MYELOID LEUKAEMIA
     Route: 042
     Dates: start: 200411
  7. CYTARABINE. [Suspect]
     Active Substance: CYTARABINE
     Indication: ACUTE MYELOID LEUKAEMIA
     Route: 042
     Dates: start: 200411
  8. AMSACRINE [Suspect]
     Active Substance: AMSACRINE
     Indication: ACUTE MYELOID LEUKAEMIA
     Route: 042
     Dates: start: 200409

REACTIONS (4)
  - Hepatosplenic candidiasis [Unknown]
  - Product use issue [Unknown]
  - Peripartum cardiomyopathy [Unknown]
  - Off label use [Unknown]

NARRATIVE: CASE EVENT DATE: 2004
